FAERS Safety Report 8512423-X (Version None)
Quarter: 2012Q3

REPORT INFORMATION
  Report Type: 
  Country: None (occurrence: None)
  Receive Date: 20120716
  Receipt Date: 20120711
  Transmission Date: 20120928
  Serious: Yes (Death)
  Sender: FDA-Public Use
  Company Number: CA-009507513-1207CAN004202

PATIENT

DRUGS (1)
  1. TEMODAL [Suspect]
     Indication: GLIOBLASTOMA
     Dosage: 125 MG, UNK
     Route: 048
     Dates: start: 20120401, end: 20120601

REACTIONS (1)
  - DEATH [None]
